FAERS Safety Report 8071572-3 (Version None)
Quarter: 2012Q1

REPORT INFORMATION
  Report Type: 
  Country: None (occurrence: None)
  Receive Date: 20120125
  Receipt Date: 20120119
  Transmission Date: 20120608
  Serious: Yes (Hospitalization)
  Sender: FDA-Public Use
  Company Number: FR-PFIZER INC-K201000204

PATIENT
  Age: 71 Year
  Sex: Male

DRUGS (10)
  1. ISOPTIN [Concomitant]
     Dosage: UNK
  2. EXELON [Concomitant]
  3. RAMIPRIL [Suspect]
     Dosage: 2.5 MG, UNK
     Route: 048
     Dates: end: 20100125
  4. LASIX [Suspect]
     Dosage: 60 MG, UNK
     Route: 048
     Dates: end: 20100125
  5. PREVISCAN [Concomitant]
     Dosage: UNK
  6. VISIPAQUE [Suspect]
     Indication: COMPUTERISED TOMOGRAM
     Dosage: ONCE
     Dates: start: 20100119, end: 20100119
  7. ATORVASTATIN [Suspect]
     Dosage: UNK
     Dates: end: 20100125
  8. GLUCOPHAGE [Suspect]
     Dosage: 850 MG, 2X/DAY
     Route: 048
     Dates: end: 20100125
  9. PLAVIX [Concomitant]
  10. BISOPROLOL FUMARATE [Concomitant]
     Dosage: UNK

REACTIONS (8)
  - CONFUSIONAL STATE [None]
  - HYPERKALAEMIA [None]
  - LACTIC ACIDOSIS [None]
  - GENERAL PHYSICAL CONDITION ABNORMAL [None]
  - DIARRHOEA [None]
  - ANAEMIA MACROCYTIC [None]
  - ABDOMINAL PAIN [None]
  - RENAL FAILURE ACUTE [None]
